FAERS Safety Report 23815136 (Version 1)
Quarter: 2024Q2

REPORT INFORMATION
  Report Type: Spontaneous
  Country: CN (occurrence: CN)
  Receive Date: 20240503
  Receipt Date: 20240503
  Transmission Date: 20240716
  Serious: Yes (Hospitalization)
  Sender: FDA-Public Use
  Company Number: CN-SANDOZ-SDZ2024CN044457

PATIENT
  Age: 39 Year
  Sex: Male
  Weight: 75.7 kg

DRUGS (1)
  1. ISOSORBIDE MONONITRATE [Suspect]
     Active Substance: ISOSORBIDE MONONITRATE
     Indication: Arteriosclerosis coronary artery
     Dosage: 0.5, QD, STRENGTH- 60 MG
     Route: 048
     Dates: start: 20240325, end: 20240326

REACTIONS (2)
  - Meningeal disorder [Recovering/Resolving]
  - Headache [Recovered/Resolved]

NARRATIVE: CASE EVENT DATE: 20240325
